FAERS Safety Report 8272520-3 (Version None)
Quarter: 2012Q2

REPORT INFORMATION
  Report Type: 
  Country: None (occurrence: None)
  Receive Date: 20120410
  Receipt Date: 20120330
  Transmission Date: 20120825
  Serious: Yes (Other)
  Sender: FDA-Public Use
  Company Number: CA-ROCHE-GNE290645

PATIENT
  Sex: Male

DRUGS (17)
  1. XOLAIR [Suspect]
     Dosage: 375 MG, Q2W
     Route: 058
     Dates: start: 20091106
  2. OXEZE [Concomitant]
     Indication: PRODUCT USED FOR UNKNOWN INDICATION
  3. SYMBICORT [Concomitant]
     Indication: PRODUCT USED FOR UNKNOWN INDICATION
  4. PSEUDOEPHEDRINE HYDROCHLORIDE [Concomitant]
     Indication: PRODUCT USED FOR UNKNOWN INDICATION
  5. NASONEX [Concomitant]
     Indication: PRODUCT USED FOR UNKNOWN INDICATION
     Dosage: UNK
     Dates: start: 20090424
  6. XOLAIR [Suspect]
     Dosage: 375 MG, Q2W
     Route: 042
     Dates: start: 20100122
  7. ACETAMINOPHEN [Concomitant]
     Indication: PRODUCT USED FOR UNKNOWN INDICATION
  8. NASONEX [Concomitant]
     Dosage: UNK
     Dates: start: 20090424
  9. XOLAIR [Suspect]
     Dosage: 375 MG, UNK
     Route: 058
     Dates: start: 20090911
  10. XOLAIR [Suspect]
     Dosage: UNK
     Dates: start: 20100106
  11. XOLAIR [Suspect]
     Dosage: 375 MG, Q2W
     Route: 058
     Dates: start: 20100203
  12. INFLUENZA VACCINE [Concomitant]
     Indication: PRODUCT USED FOR UNKNOWN INDICATION
  13. SYMBICORT [Concomitant]
  14. XOLAIR [Suspect]
     Indication: ASTHMA
     Dosage: 375 MG, Q2W
     Route: 058
     Dates: start: 20090424
  15. XOLAIR [Suspect]
     Dosage: 375 MG, Q2W
     Route: 058
     Dates: start: 20100416
  16. XOLAIR [Suspect]
     Dosage: 375 MG, Q2W
     Route: 058
     Dates: start: 20091120
  17. XOLAIR [Suspect]
     Dosage: 375 MG, Q2W
     Dates: start: 20100303

REACTIONS (21)
  - HEART RATE INCREASED [None]
  - PRURITUS [None]
  - DYSPNOEA [None]
  - DRUG WITHDRAWAL SYNDROME [None]
  - COUGH [None]
  - NASAL CONGESTION [None]
  - RHINITIS ALLERGIC [None]
  - RESPIRATORY FAILURE [None]
  - SECRETION DISCHARGE [None]
  - PRODUCTIVE COUGH [None]
  - BLOOD PRESSURE DECREASED [None]
  - ASTHMA [None]
  - BODY TEMPERATURE DECREASED [None]
  - OROPHARYNGEAL PAIN [None]
  - NASOPHARYNGITIS [None]
  - RHINORRHOEA [None]
  - SLEEP DISORDER [None]
  - RHINITIS [None]
  - LACRIMATION INCREASED [None]
  - HEADACHE [None]
  - TREATMENT NONCOMPLIANCE [None]
